FAERS Safety Report 12634038 (Version 1)
Quarter: 2016Q3

REPORT INFORMATION
  Report Type: Spontaneous
  Country: US (occurrence: US)
  Receive Date: 20160809
  Receipt Date: 20160809
  Transmission Date: 20161109
  Serious: No
  Sender: FDA-Public Use
  Company Number: US-GLAXOSMITHKLINE-US2016GSK114007

PATIENT
  Sex: Female
  Weight: 49 kg

DRUGS (7)
  1. OSCAL 500 CHEWABLE TABLET [Concomitant]
     Indication: BLOOD CALCIUM
     Dosage: UNK UNK, QD
     Dates: start: 1976
  2. VITAMIN D TABLET [Concomitant]
     Indication: VITAMIN D DEFICIENCY
     Dosage: UNK
  3. NICOTINE GUM 4MG UNKNOWN BRAND MEDICATED CHEWING-GUM [Suspect]
     Active Substance: NICOTINE
     Indication: PRODUCT USED FOR UNKNOWN INDICATION
     Dosage: UNK
     Dates: end: 2004
  4. NICOTINE TRANSDERMAL PATCH [Suspect]
     Active Substance: NICOTINE
     Indication: PRODUCT USED FOR UNKNOWN INDICATION
     Dosage: 14 MG, UNK
     Dates: end: 2004
  5. VALSARTAN. [Concomitant]
     Active Substance: VALSARTAN
     Indication: HYPERTENSION
     Dosage: UNK UNK, QD
  6. ASPIRIN. [Concomitant]
     Active Substance: ASPIRIN
     Indication: BLOOD CHOLESTEROL INCREASED
     Dosage: UNK UNK, QD
     Dates: start: 2015
  7. OMEPRAZOLE CAPSULE [Concomitant]
     Active Substance: OMEPRAZOLE
     Indication: DYSPEPSIA
     Dosage: UNK UNK, QD
     Dates: start: 2006

REACTIONS (4)
  - Drug ineffective [Unknown]
  - Headache [Unknown]
  - Nightmare [Recovered/Resolved]
  - Depression [Recovered/Resolved]

NARRATIVE: CASE EVENT DATE: 2008
